FAERS Safety Report 15433550 (Version 1)
Quarter: 2018Q3

REPORT INFORMATION
  Report Type: Spontaneous
  Country: US (occurrence: US)
  Receive Date: 20180921
  Receipt Date: 20180921
  Transmission Date: 20181010
  Serious: Yes (Disabling, Other)
  Sender: FDA-Public Use
  Company Number: None

PATIENT
  Age: 59 Year
  Sex: Female
  Weight: 117 kg

DRUGS (10)
  1. ROPINIROLE TAB 2 MG [Suspect]
     Active Substance: ROPINIROLE HYDROCHLORIDE
     Indication: RESTLESS LEGS SYNDROME
     Dosage: ?          QUANTITY:1 TABLET(S);?
     Route: 048
     Dates: start: 20170401, end: 20180920
  2. METOPROLOL. [Concomitant]
     Active Substance: METOPROLOL
  3. OMEMPRAZOLE [Concomitant]
  4. HYDROCHLOROTHIAZEDE [Concomitant]
  5. ONE?A?DAY NOS [Concomitant]
     Active Substance: MINERALS\VITAMINS
  6. BALSALAZIDE [Concomitant]
     Active Substance: BALSALAZIDE
  7. GABAPENTIN. [Concomitant]
     Active Substance: GABAPENTIN
  8. ROPINIROLE. [Concomitant]
     Active Substance: ROPINIROLE
  9. LOW DOSE ASPIRIN [Concomitant]
     Active Substance: ASPIRIN
  10. VASOTEC [Concomitant]
     Active Substance: ENALAPRIL MALEATE

REACTIONS (1)
  - Gambling disorder [None]

NARRATIVE: CASE EVENT DATE: 20180824
